FAERS Safety Report 9397344 (Version 1)
Quarter: 2013Q3

REPORT INFORMATION
  Report Type: Spontaneous
  Country: US (occurrence: None)
  Receive Date: 20130711
  Receipt Date: 20130711
  Transmission Date: 20140515
  Serious: Yes (Hospitalization)
  Sender: FDA-Public Use
  Company Number: None

PATIENT
  Age: 43 Year
  Sex: Male
  Weight: 89.8 kg

DRUGS (1)
  1. ALFA 2 INTERFERON 2B (INTRON-A) [Suspect]
     Dosage: 112 MU
     Dates: end: 20130515

REACTIONS (6)
  - Malaise [None]
  - Vomiting [None]
  - Nausea [None]
  - Weight decreased [None]
  - Pancreatitis [None]
  - Blood potassium decreased [None]
